FAERS Safety Report 8492073-4 (Version None)
Quarter: 2012Q2

REPORT INFORMATION
  Report Type: 
  Country: None (occurrence: None)
  Receive Date: 20120627
  Receipt Date: 20120611
  Transmission Date: 20120825
  Serious: Yes (Other)
  Sender: FDA-Public Use
  Company Number: IPC201206-000255

PATIENT
  Age: 83 Year
  Sex: Female

DRUGS (3)
  1. HYDROXYCHLOROQUINE SULFATE [Suspect]
     Dates: end: 20120410
  2. COLCRYS [Suspect]
  3. CRESTOR [Concomitant]

REACTIONS (10)
  - LETHARGY [None]
  - NAUSEA [None]
  - VISUAL IMPAIRMENT [None]
  - ASTHENIA [None]
  - RASH [None]
  - DECREASED APPETITE [None]
  - ORAL DISCOMFORT [None]
  - LIP SWELLING [None]
  - MOOD SWINGS [None]
  - ORAL HERPES [None]
